FAERS Safety Report 20521386 (Version 1)
Quarter: 2022Q1

REPORT INFORMATION
  Report Type: Spontaneous
  Country: CA (occurrence: CA)
  Receive Date: 20220226
  Receipt Date: 20220226
  Transmission Date: 20220423
  Serious: Yes (Other)
  Sender: FDA-Public Use
  Company Number: None

PATIENT
  Age: 55 Year
  Sex: Male

DRUGS (3)
  1. METHOTREXATE [Suspect]
     Active Substance: METHOTREXATE
     Indication: Product used for unknown indication
     Dosage: 1 EVERY 1 WEEKS
     Route: 065
  2. MAGNESIUM [Concomitant]
     Active Substance: MAGNESIUM
     Route: 048
  3. OMEGA 3 [Concomitant]
     Active Substance: CAPSAICIN
     Route: 048

REACTIONS (4)
  - Benign prostatic hyperplasia [Recovered/Resolved]
  - Blood pressure increased [Recovered/Resolved]
  - Diverticulitis [Recovered/Resolved]
  - Drug ineffective [Unknown]
